FAERS Safety Report 8485761-7 (Version None)
Quarter: 2012Q3

REPORT INFORMATION
  Report Type: 
  Country: None (occurrence: None)
  Receive Date: 20120703
  Receipt Date: 20120620
  Transmission Date: 20120928
  Serious: No
  Sender: FDA-Public Use
  Company Number: FR-JNJFOC-20120612125

PATIENT
  Age: 48 Year
  Sex: Male

DRUGS (2)
  1. DURAGESIC-100 [Suspect]
     Route: 062
  2. DURAGESIC-100 [Suspect]
     Indication: CANCER PAIN
     Route: 062

REACTIONS (1)
  - INCORRECT DOSE ADMINISTERED [None]
